FAERS Safety Report 9018053 (Version 2)
Quarter: 2013Q1

REPORT INFORMATION
  Report Type: Spontaneous
  Country: AU (occurrence: AU)
  Receive Date: 20130117
  Receipt Date: 20130122
  Transmission Date: 20140127
  Serious: Yes (Death)
  Sender: FDA-Public Use
  Company Number: AU-B.I. PHARMACEUTICALS,INC./RIDGEFIELD-2013-AU-00020AU

PATIENT
  Age: 87 None
  Sex: Male
  Weight: 68 kg

DRUGS (7)
  1. PRADAXA [Suspect]
     Indication: CEREBROVASCULAR ACCIDENT PROPHYLAXIS
     Dosage: 220 MG
     Dates: start: 20110721, end: 20121224
  2. PRADAXA [Suspect]
     Indication: ATRIAL FIBRILLATION
  3. LIPITOR [Concomitant]
     Dosage: 40 MG
  4. MONODUR [Concomitant]
     Dosage: 60 MG
  5. NOTEN [Concomitant]
     Dosage: 50 MG
  6. OLMETEC PLUS [Concomitant]
     Dosage: 40/12.5
  7. GTN [Concomitant]
     Indication: ANGINA PECTORIS
     Dosage: 40 NR

REACTIONS (2)
  - Myocardial infarction [Fatal]
  - Angina pectoris [Unknown]
